FAERS Safety Report 10166351 (Version 44)
Quarter: 2017Q3

REPORT INFORMATION
  Report Type: Report from Study
  Country: CA (occurrence: CA)
  Receive Date: 20140512
  Receipt Date: 20170805
  Transmission Date: 20171127
  Serious: Yes (Other)
  Sender: FDA-Public Use
  Company Number: CA-ROCHE-1339281

PATIENT
  Age: 67 Year
  Sex: Female
  Weight: 70.7 kg

DRUGS (14)
  1. FLOVENT [Concomitant]
     Active Substance: FLUTICASONE PROPIONATE
     Dosage: AS REQUIRED
     Route: 065
  2. ACTEMRA [Suspect]
     Active Substance: TOCILIZUMAB
     Indication: RHEUMATOID ARTHRITIS
     Route: 042
     Dates: start: 20131206
  3. ACTEMRA [Suspect]
     Active Substance: TOCILIZUMAB
     Route: 042
     Dates: start: 20150219
  4. AIROMIR [Concomitant]
     Active Substance: ALBUTEROL SULFATE
     Dosage: AS REQUIRED
     Route: 065
  5. FOSAMAX [Concomitant]
     Active Substance: ALENDRONATE SODIUM
     Dosage: AS REQUIRED
     Route: 065
  6. PARIET [Concomitant]
     Active Substance: RABEPRAZOLE SODIUM
  7. AZATHIOPRINE. [Concomitant]
     Active Substance: AZATHIOPRINE
  8. ACTEMRA [Suspect]
     Active Substance: TOCILIZUMAB
     Route: 042
     Dates: start: 20150319
  9. ACTEMRA [Suspect]
     Active Substance: TOCILIZUMAB
     Route: 042
     Dates: start: 20140805
  10. PREDNISONE. [Concomitant]
     Active Substance: PREDNISONE
  11. ACTEMRA [Suspect]
     Active Substance: TOCILIZUMAB
     Route: 042
     Dates: start: 20140102
  12. ACTEMRA [Suspect]
     Active Substance: TOCILIZUMAB
     Route: 042
     Dates: start: 20141223
  13. TYLENOL WITH CODEINE [Concomitant]
     Active Substance: ACETAMINOPHEN\CODEINE PHOSPHATE
     Dosage: AS REQUIRED
     Route: 065
  14. ATENOLOL. [Concomitant]
     Active Substance: ATENOLOL

REACTIONS (34)
  - Cystitis [Unknown]
  - Abdominal discomfort [Unknown]
  - Nasal dryness [Not Recovered/Not Resolved]
  - Fungal infection [Not Recovered/Not Resolved]
  - Dental caries [Unknown]
  - Urinary tract infection [Recovered/Resolved]
  - Tooth disorder [Unknown]
  - Ocular hyperaemia [Unknown]
  - Nasal congestion [Not Recovered/Not Resolved]
  - Infected cyst [Recovering/Resolving]
  - Arthralgia [Unknown]
  - Constipation [Not Recovered/Not Resolved]
  - Glossodynia [Not Recovered/Not Resolved]
  - Tooth disorder [Recovered/Resolved]
  - Blood pressure fluctuation [Unknown]
  - Blood pressure increased [Unknown]
  - Musculoskeletal pain [Not Recovered/Not Resolved]
  - Cyst [Recovered/Resolved]
  - Pharyngitis streptococcal [Unknown]
  - Dry skin [Unknown]
  - Cough [Recovered/Resolved]
  - Blood pressure diastolic decreased [Unknown]
  - Varicose vein [Not Recovered/Not Resolved]
  - Oral herpes [Recovered/Resolved]
  - Arthralgia [Not Recovered/Not Resolved]
  - Cyst [Not Recovered/Not Resolved]
  - Dyspnoea [Unknown]
  - Infusion related reaction [Unknown]
  - Nasopharyngitis [Unknown]
  - Blood pressure diastolic abnormal [Unknown]
  - Hypoacusis [Not Recovered/Not Resolved]
  - Gingival pain [Unknown]
  - Abdominal pain upper [Recovered/Resolved]
  - Diarrhoea [Unknown]

NARRATIVE: CASE EVENT DATE: 201401
